FAERS Safety Report 7183625 (Version 3)
Quarter: 2013Q2

REPORT INFORMATION
  Report Type: Spontaneous
  Country: CH (occurrence: CH)
  Receive Date: 20091120
  Receipt Date: 20130418
  Transmission Date: 20140414
  Serious: Yes (Other)
  Sender: FDA-Public Use
  Company Number: CH-ABBOTT-09P-151-0608258-00

PATIENT
  Age: 25 Year
  Sex: Female

DRUGS (3)
  1. ADALIMUMAB [Suspect]
     Indication: CROHN^S DISEASE
     Route: 050
  2. AZATHIOPRINE [Concomitant]
     Indication: CROHN^S DISEASE
  3. PREDNISOLONE [Concomitant]
     Indication: CROHN^S DISEASE
     Dosage: BETWEEN 10-60 MG

REACTIONS (1)
  - Cardiomyopathy [Recovered/Resolved]
